FAERS Safety Report 8048687-9 (Version None)
Quarter: 2012Q1

REPORT INFORMATION
  Report Type: 
  Country: None (occurrence: None)
  Receive Date: 20120117
  Receipt Date: 20111018
  Transmission Date: 20120608
  Serious: No
  Sender: FDA-Public Use
  Company Number: US-MYLANLABS-2011S1021830

PATIENT

DRUGS (2)
  1. BUPROPION HYDROCHLORIDE [Suspect]
     Dates: start: 20050101, end: 20050101
  2. BUPROPION HYDROCHLORIDE [Suspect]
     Dates: start: 20050101, end: 20050101

REACTIONS (5)
  - DRUG INEFFECTIVE [None]
  - GASTROINTESTINAL DISORDER [None]
  - DEPRESSION [None]
  - ANXIETY [None]
  - TREMOR [None]
